FAERS Safety Report 8026971-2 (Version None)
Quarter: 2011Q4

REPORT INFORMATION
  Report Type: 
  Country: None (occurrence: None)
  Receive Date: 20111130
  Receipt Date: 20110810
  Transmission Date: 20120403
  Serious: Yes (Hospitalization, Other)
  Sender: FDA-Public Use
  Company Number: US201008003331

PATIENT
  Age: 25 Year
  Sex: Male
  Weight: 149.2 kg

DRUGS (6)
  1. NOVOLOG MIX 70/30 [Concomitant]
  2. AMBIEN [Concomitant]
  3. LIPITOR [Concomitant]
  4. BYETTA [Suspect]
     Indication: TYPE 2 DIABETES MELLITUS
     Dosage: 10 UG, BID
     Dates: start: 20081222, end: 20090301
  5. PERCOCET [Concomitant]
  6. ALTACE [Concomitant]

REACTIONS (2)
  - OFF LABEL USE [None]
  - PANCREATITIS ACUTE [None]
